APPROVED DRUG PRODUCT: BLOXIVERZ
Active Ingredient: NEOSTIGMINE METHYLSULFATE
Strength: 5MG/5ML (1MG/ML)
Dosage Form/Route: SOLUTION;INTRAVENOUS
Application: N204078 | Product #003
Applicant: EXELA PHARMA SCIENCES LLC
Approved: Oct 27, 2023 | RLD: Yes | RS: Yes | Type: RX